FAERS Safety Report 7755286-2 (Version None)
Quarter: 2011Q3

REPORT INFORMATION
  Report Type: 
  Country: None (occurrence: None)
  Receive Date: 20110916
  Receipt Date: 20110914
  Transmission Date: 20111222
  Serious: Yes (Death, Other)
  Sender: FDA-Public Use
  Company Number: FR-PFIZER INC-2011216515

PATIENT
  Age: 29 Year
  Sex: Male

DRUGS (3)
  1. ENBREL [Suspect]
     Dosage: 50 MG, WEEKLY
     Route: 058
  2. CELEBREX [Suspect]
     Route: 048
  3. PREDNISONE [Suspect]
     Route: 048

REACTIONS (5)
  - LUNG INFECTION PSEUDOMONAL [None]
  - NECROTISING FASCIITIS [None]
  - MULTI-ORGAN FAILURE [None]
  - CARDIAC ARREST [None]
  - SEPTIC SHOCK [None]
